FAERS Safety Report 9373056 (Version 1)
Quarter: 2013Q2

REPORT INFORMATION
  Report Type: Spontaneous
  Country: US (occurrence: None)
  Receive Date: 20130625
  Receipt Date: 20130625
  Transmission Date: 20140414
  Serious: Yes (Death, Hospitalization)
  Sender: FDA-Public Use
  Company Number: 2013AP006088

PATIENT
  Age: 67 Year
  Sex: Female
  Weight: 58.3 kg

DRUGS (1)
  1. FERRIPROX [Suspect]
     Indication: MYELOFIBROSIS
     Route: 048

REACTIONS (1)
  - Death [None]
